FAERS Safety Report 5665298-0 (Version None)
Quarter: 2008Q1

REPORT INFORMATION
  Report Type: 
  Country: None (occurrence: None)
  Receive Date: 20080314
  Receipt Date: 20071205
  Transmission Date: 20080703
  Serious: No
  Sender: FDA-Public Use
  Company Number: US-ABBOTT-07P-163-0426941-00

PATIENT
  Sex: Male
  Weight: 73.094 kg

DRUGS (4)
  1. HUMIRA [Suspect]
     Indication: CROHN'S DISEASE
     Route: 058
     Dates: start: 20070820, end: 20070903
  2. HUMIRA [Suspect]
     Route: 058
     Dates: start: 20070903, end: 20071119
  3. HUMIRA [Suspect]
     Dosage: PEN
     Route: 058
     Dates: start: 20071119
  4. HUMIRA [Suspect]
     Indication: CROHN'S DISEASE
     Dates: start: 20071119

REACTIONS (2)
  - ACCIDENTAL EXPOSURE [None]
  - INJECTION SITE PAIN [None]
